FAERS Safety Report 6232957-0 (Version None)
Quarter: 2009Q2

REPORT INFORMATION
  Report Type: 
  Country: None (occurrence: None)
  Receive Date: 20090612
  Receipt Date: 20090603
  Transmission Date: 20091009
  Serious: Yes (Other)
  Sender: FDA-Public Use
  Company Number: US-WYE-H09620409

PATIENT
  Age: 18 Year
  Sex: Male

DRUGS (2)
  1. ROBITUSSIN   COUGH (DEXTROMETHORPHAN HYDROBROMIDE, CAPSULE, LIQUID FIL [Suspect]
     Indication: COUGH
     Dosage: 12 COUGH GELS, ORAL
     Route: 048
     Dates: start: 20090602
  2. ROBITUSSIN   COUGH (DEXTROMETHORPHAN HYDROBROMIDE, CAPSULE, LIQUID FIL [Suspect]
     Indication: DRUG ABUSE
     Dosage: 12 COUGH GELS, ORAL
     Route: 048
     Dates: start: 20090602

REACTIONS (3)
  - DRUG ABUSE [None]
  - INTENTIONAL DRUG MISUSE [None]
  - INTENTIONAL OVERDOSE [None]
